FAERS Safety Report 6107974-1 (Version None)
Quarter: 2009Q1

REPORT INFORMATION
  Report Type: 
  Country: None (occurrence: None)
  Receive Date: 20090309
  Receipt Date: 20090224
  Transmission Date: 20090719
  Serious: Yes (Other)
  Sender: FDA-Public Use
  Company Number: PHEH2009US02040

PATIENT
  Sex: Female

DRUGS (1)
  1. VIVELLE-DOT [Suspect]
     Dosage: 0.025 MG
     Route: 062
     Dates: start: 20080801

REACTIONS (5)
  - AGGRESSION [None]
  - HOMICIDAL IDEATION [None]
  - HORMONE LEVEL ABNORMAL [None]
  - HOT FLUSH [None]
  - MOOD SWINGS [None]
